FAERS Safety Report 7841977-1 (Version None)
Quarter: 2011Q4

REPORT INFORMATION
  Report Type: 
  Country: None (occurrence: None)
  Receive Date: 20111025
  Receipt Date: 20111013
  Transmission Date: 20120403
  Serious: Yes (Other)
  Sender: FDA-Public Use
  Company Number: JP-SANOFI-AVENTIS-2011SA066870

PATIENT
  Age: 73 Year
  Sex: Male
  Weight: 50 kg

DRUGS (12)
  1. CLARITHROMYCIN [Concomitant]
     Route: 065
  2. CLARITHROMYCIN [Concomitant]
     Route: 065
  3. ETHAMBUTOL HYDROCHLORIDE [Concomitant]
     Route: 065
  4. LEVOFLOXACIN [Concomitant]
     Route: 065
  5. RIFABUTIN [Concomitant]
     Route: 065
  6. VORICONAZOLE [Interacting]
     Route: 065
  7. RIFAMPIN [Concomitant]
     Route: 065
  8. AMARYL [Interacting]
     Route: 065
  9. RIFAMPIN [Concomitant]
     Dosage: DAILY DOSE: 450 TO 600 MG/DAY
     Route: 065
  10. AZITHROMYCIN [Suspect]
     Route: 065
  11. STREPTOMYCIN [Concomitant]
     Dosage: 3 DOSES PER WEEK OF STREPTOMYCIN (0.6 G)
  12. CLARITHROMYCIN [Concomitant]
     Dosage: DAILY DOSE: 500 TO 100 MG/DAY
     Route: 065

REACTIONS (5)
  - CONFUSIONAL STATE [None]
  - DYSARTHRIA [None]
  - HYPOGLYCAEMIA [None]
  - GASTROINTESTINAL DISORDER [None]
  - DRUG INTERACTION [None]
